FAERS Safety Report 14935748 (Version 1)
Quarter: 2018Q2

REPORT INFORMATION
  Report Type: Spontaneous
  Country: IT (occurrence: IT)
  Receive Date: 20180524
  Receipt Date: 20180524
  Transmission Date: 20180711
  Serious: Yes (Other)
  Sender: FDA-Public Use
  Company Number: PHHY2017IT163992

PATIENT
  Age: 64 Year
  Sex: Male

DRUGS (1)
  1. CILODEX [Suspect]
     Active Substance: CIPROFLOXACIN\DEXAMETHASONE
     Indication: PRODUCT USED FOR UNKNOWN INDICATION
     Route: 065

REACTIONS (7)
  - Dyspnoea [Unknown]
  - Dizziness [Unknown]
  - Hypertension [Unknown]
  - Cataract [Unknown]
  - Peripheral swelling [Recovered/Resolved]
  - Dermatitis acneiform [Unknown]
  - Discomfort [Unknown]
